FAERS Safety Report 15493143 (Version 1)
Quarter: 2018Q4

REPORT INFORMATION
  Report Type: Spontaneous
  Country: CO (occurrence: CO)
  Receive Date: 20181012
  Receipt Date: 20181012
  Transmission Date: 20190205
  Serious: Yes (Hospitalization)
  Sender: FDA-Public Use
  Company Number: CO-CELGENEUS-COL-20180508067

PATIENT
  Age: 68 Year
  Sex: Female

DRUGS (3)
  1. GEMCITABINE [Concomitant]
     Active Substance: GEMCITABINE\GEMCITABINE HYDROCHLORIDE
     Indication: PRODUCT USED FOR UNKNOWN INDICATION
     Route: 065
  2. HYDROCORTISONE. [Concomitant]
     Active Substance: HYDROCORTISONE
     Indication: PRODUCT USED FOR UNKNOWN INDICATION
     Route: 061
  3. ABRAXANE [Suspect]
     Active Substance: PACLITAXEL
     Indication: PANCREATIC CARCINOMA
     Dosage: 192 MILLIGRAM
     Route: 041
     Dates: start: 20180227, end: 20180906

REACTIONS (3)
  - Inflammation [Recovered/Resolved]
  - Eye irritation [Unknown]
  - Eye pruritus [Unknown]

NARRATIVE: CASE EVENT DATE: 20180514
